FAERS Safety Report 10438312 (Version 2)
Quarter: 2014Q3

REPORT INFORMATION
  Report Type: Spontaneous
  Country: US (occurrence: US)
  Receive Date: 20140908
  Receipt Date: 20140908
  Transmission Date: 20150326
  Serious: No
  Sender: FDA-Public Use
  Company Number: US-BRISTOL-MYERS SQUIBB COMPANY-19143379

PATIENT
  Age: 42 Year
  Sex: Female

DRUGS (8)
  1. VITAMIN B6 [Concomitant]
     Active Substance: PYRIDOXINE HYDROCHLORIDE
  2. METHIMAZOLE. [Concomitant]
     Active Substance: METHIMAZOLE
  3. PROPANOLOL HYDROCHLORIDE [Concomitant]
     Active Substance: PROPRANOLOL HYDROCHLORIDE
  4. FISH OIL [Concomitant]
     Active Substance: FISH OIL
  5. VITAMIN B12 [Concomitant]
     Active Substance: CYANOCOBALAMIN
  6. MELATONIN [Concomitant]
     Active Substance: MELATONIN
  7. ABILIFY [Suspect]
     Active Substance: ARIPIPRAZOLE
  8. CITALOPRAM [Concomitant]
     Active Substance: CITALOPRAM HYDROBROMIDE
     Dosage: CITALOPRAM HBR 40MG

REACTIONS (2)
  - Wrong technique in drug usage process [Unknown]
  - Nausea [Unknown]
